FAERS Safety Report 12570016 (Version 1)
Quarter: 2016Q3

REPORT INFORMATION
  Report Type: Spontaneous
  Country: US (occurrence: None)
  Receive Date: 20160718
  Receipt Date: 20160718
  Transmission Date: 20161109
  Serious: Yes (Disabling)
  Sender: FDA-Public Use
  Company Number: None

PATIENT
  Age: 36 Year
  Sex: Female
  Weight: 81.65 kg

DRUGS (4)
  1. STELARA [Suspect]
     Active Substance: USTEKINUMAB
     Indication: PSORIASIS
     Dosage: EVERY 4 WEEKS  GIVEN INTO/UNDER THE SKIN
     Route: 058
     Dates: start: 20160526, end: 20160623
  2. MVI [Concomitant]
     Active Substance: VITAMINS
  3. ALEVE [Concomitant]
     Active Substance: NAPROXEN SODIUM
  4. ZYRTEC [Concomitant]
     Active Substance: CETIRIZINE HYDROCHLORIDE

REACTIONS (2)
  - Mobility decreased [None]
  - Arthralgia [None]

NARRATIVE: CASE EVENT DATE: 20160608
